FAERS Safety Report 6215049-6 (Version None)
Quarter: 2009Q2

REPORT INFORMATION
  Report Type: 
  Country: None (occurrence: None)
  Receive Date: 20090604
  Receipt Date: 20090206
  Transmission Date: 20091009
  Serious: No
  Sender: FDA-Public Use
  Company Number: US-ASTRAZENECA-2008UW28451

PATIENT
  Age: 62 Year
  Sex: Female
  Weight: 81.2 kg

DRUGS (3)
  1. PRILOSEC [Suspect]
     Indication: GASTROOESOPHAGEAL REFLUX DISEASE
     Route: 048
  2. ALTACE [Concomitant]
  3. LEXAPRO [Concomitant]

REACTIONS (5)
  - ANXIETY [None]
  - FAILURE OF IMPLANT [None]
  - ILL-DEFINED DISORDER [None]
  - IRON DEFICIENCY ANAEMIA [None]
  - PANIC ATTACK [None]
